FAERS Safety Report 25102300 (Version 1)
Quarter: 2025Q1

REPORT INFORMATION
  Report Type: Spontaneous
  Country: US (occurrence: US)
  Receive Date: 20250320
  Receipt Date: 20250320
  Transmission Date: 20250408
  Serious: No
  Sender: BIOGEN
  Company Number: US-BIOGEN-2025BI01304432

PATIENT
  Sex: Male

DRUGS (1)
  1. QALSODY [Suspect]
     Active Substance: TOFERSEN
     Indication: Amyotrophic lateral sclerosis
     Route: 050
     Dates: start: 20240319

REACTIONS (5)
  - Insomnia [Unknown]
  - Migraine [Unknown]
  - Neurological symptom [Unknown]
  - CSF protein increased [Unknown]
  - White blood cell count increased [Unknown]
